FAERS Safety Report 18312100 (Version 1)
Quarter: 2020Q3

REPORT INFORMATION
  Report Type: Spontaneous
  Country: US (occurrence: US)
  Receive Date: 20200925
  Receipt Date: 20200925
  Transmission Date: 20201103
  Serious: No
  Sender: FDA-Public Use
  Company Number: US-SUNOVION-2020SUN002705

PATIENT

DRUGS (3)
  1. KLONOPIN [Concomitant]
     Active Substance: CLONAZEPAM
     Dosage: 1 MG, BID
  2. LATUDA [Suspect]
     Active Substance: LURASIDONE HYDROCHLORIDE
     Indication: BIPOLAR I DISORDER
     Dosage: 120 MG
     Route: 048
  3. LITHIUM. [Concomitant]
     Active Substance: LITHIUM
     Dosage: 900 MG

REACTIONS (5)
  - Anxiety [Unknown]
  - Depression [Unknown]
  - Panic disorder [Unknown]
  - Obsessive thoughts [Unknown]
  - Merycism [Unknown]
